FAERS Safety Report 6641814-7 (Version None)
Quarter: 2010Q1

REPORT INFORMATION
  Report Type: 
  Country: None (occurrence: None)
  Receive Date: 20100316
  Receipt Date: 20100305
  Transmission Date: 20100710
  Serious: Yes (Other)
  Sender: FDA-Public Use
  Company Number: DSA_42738_2010

PATIENT
  Age: 63 Year
  Sex: Male

DRUGS (2)
  1. BUPROPION HCL [Suspect]
     Indication: MAJOR DEPRESSION
     Dosage: 150 MG, TOTAL DAILY DOSE; 300 MG, TOTAL DAILY DOSE; 450 MG, TOTAL DAILY DOSE
  2. AMLODIPINE [Concomitant]

REACTIONS (4)
  - ANXIETY [None]
  - DISTURBANCE IN ATTENTION [None]
  - DYSKINESIA [None]
  - INSOMNIA [None]
